FAERS Safety Report 22897852 (Version 2)
Quarter: 2023Q4

REPORT INFORMATION
  Report Type: Spontaneous
  Country: US (occurrence: US)
  Receive Date: 20230903
  Receipt Date: 20231020
  Transmission Date: 20240110
  Serious: No
  Sender: FDA-Public Use
  Company Number: US-PHARMAESSENTIA CORPORATION-US-2023-PEC-001690

PATIENT
  Sex: Male

DRUGS (1)
  1. BESREMI [Suspect]
     Active Substance: ROPEGINTERFERON ALFA-2B-NJFT
     Indication: Polycythaemia vera
     Dosage: 100 MCG, Q2W, INCREASE DOSE 50MCG EVERY 2 WEEKS AS DIRECTED OR UNTIL MAX 500MCG
     Route: 058
     Dates: start: 20230522

REACTIONS (3)
  - Skin discolouration [Not Recovered/Not Resolved]
  - Perioral dermatitis [Not Recovered/Not Resolved]
  - Dry skin [Not Recovered/Not Resolved]
